FAERS Safety Report 10924793 (Version 2)
Quarter: 2015Q2

REPORT INFORMATION
  Report Type: Spontaneous
  Country: US (occurrence: US)
  Receive Date: 20150318
  Receipt Date: 20150524
  Transmission Date: 20150821
  Serious: No
  Sender: FDA-Public Use
  Company Number: US-JNJFOC-20120706622

PATIENT
  Age: 29 Year
  Sex: Male
  Weight: 86.18 kg

DRUGS (5)
  1. NIZORAL [Suspect]
     Active Substance: KETOCONAZOLE
     Indication: SKIN EXFOLIATION
     Dosage: 1 TEASPOON EVERY THREE TO FOUR DAYS
     Route: 061
  2. AN UNKNOWN MEDICATION [Concomitant]
     Active Substance: UNSPECIFIED INGREDIENT
     Indication: HAIR GROWTH ABNORMAL
     Route: 065
  3. PROPECIA [Concomitant]
     Active Substance: FINASTERIDE
     Indication: HAIR GROWTH ABNORMAL
     Route: 065
  4. CENTRUM SILVER [Concomitant]
     Active Substance: VITAMINS
     Indication: ROUTINE HEALTH MAINTENANCE
     Route: 065
  5. NIZORAL [Suspect]
     Active Substance: KETOCONAZOLE
     Indication: PRURITUS
     Dosage: 1 TEASPOON EVERY THREE TO FOUR DAYS
     Route: 061

REACTIONS (2)
  - Alopecia [Unknown]
  - Product use issue [Unknown]
